FAERS Safety Report 6367613-1 (Version None)
Quarter: 2009Q3

REPORT INFORMATION
  Report Type: 
  Country: None (occurrence: None)
  Receive Date: 20090921
  Receipt Date: 20090914
  Transmission Date: 20100115
  Serious: No
  Sender: FDA-Public Use
  Company Number: US-B.I. PHARMACEUTICALS,INC./RIDGEFIELD-2008-BP-18338BP

PATIENT
  Sex: Female

DRUGS (2)
  1. SPIRIVA [Suspect]
     Indication: CHRONIC OBSTRUCTIVE PULMONARY DISEASE
     Dates: start: 20080901
  2. SPIRIVA [Suspect]
     Indication: EMPHYSEMA

REACTIONS (4)
  - DRUG INEFFECTIVE [None]
  - DYSURIA [None]
  - EYE PAIN [None]
  - GLAUCOMA [None]
